FAERS Safety Report 4587940-8 (Version None)
Quarter: 2005Q1

REPORT INFORMATION
  Report Type: 
  Country: None (occurrence: None)
  Receive Date: 20050215
  Receipt Date: 20050201
  Transmission Date: 20050727
  Serious: Yes (Hospitalization)
  Sender: FDA-Public Use
  Company Number: 2005-BP-01531NB

PATIENT
  Age: 87 Year
  Sex: Male

DRUGS (2)
  1. PERSANTIN [Suspect]
     Indication: MYOCARDIAL ISCHAEMIA
     Dosage: PO
     Route: 048
     Dates: end: 19971129
  2. MEXILETINE HYDROCHLORIDE [Concomitant]

REACTIONS (1)
  - DIVERTICULITIS INTESTINAL HAEMORRHAGIC [None]
